FAERS Safety Report 6134010-3 (Version None)
Quarter: 2009Q1

REPORT INFORMATION
  Report Type: 
  Country: None (occurrence: None)
  Receive Date: 20090326
  Receipt Date: 20090316
  Transmission Date: 20090719
  Serious: No
  Sender: FDA-Public Use
  Company Number: US-ELI_LILLY_AND_COMPANY-US200903003838

PATIENT
  Sex: Female

DRUGS (5)
  1. CYMBALTA [Suspect]
     Indication: DEPRESSION
     Dosage: 90 MG, UNK
  2. PROZAC [Suspect]
  3. LOESTRIN 1.5/30 [Concomitant]
  4. LAMICTAL [Concomitant]
  5. ABILIFY [Concomitant]

REACTIONS (5)
  - BLOOD GLUCOSE INCREASED [None]
  - HAEMATOCRIT INCREASED [None]
  - HAEMOGLOBIN INCREASED [None]
  - HEPATIC STEATOSIS [None]
  - TREMOR [None]
